APPROVED DRUG PRODUCT: FUROSEMIDE
Active Ingredient: FUROSEMIDE
Strength: 20MG
Dosage Form/Route: TABLET;ORAL
Application: N018868 | Product #001
Applicant: KALAPHARM INC
Approved: Jun 28, 1983 | RLD: No | RS: No | Type: DISCN